FAERS Safety Report 13944708 (Version 1)
Quarter: 2017Q3

REPORT INFORMATION
  Report Type: Spontaneous
  Country: US (occurrence: US)
  Receive Date: 20170907
  Receipt Date: 20170907
  Transmission Date: 20171128
  Serious: No
  Sender: FDA-Public Use
  Company Number: US-ROCHE-1387725

PATIENT
  Sex: Male

DRUGS (8)
  1. ACETAMINOPHEN. [Concomitant]
     Active Substance: ACETAMINOPHEN
     Indication: PREMEDICATION
     Dosage: PREMEDICATION FOR RITUXAN
     Route: 065
  2. RITUXAN [Suspect]
     Active Substance: RITUXIMAB
     Indication: WALDENSTROM^S MACROGLOBULINAEMIA
     Dosage: 8 EPISODES
     Route: 042
     Dates: start: 2005
  3. PEPCID [Concomitant]
     Active Substance: FAMOTIDINE
     Indication: PREMEDICATION
  4. DEXAMETHASONE. [Concomitant]
     Active Substance: DEXAMETHASONE
     Indication: PREMEDICATION
  5. RITUXAN [Suspect]
     Active Substance: RITUXIMAB
     Indication: NON-HODGKIN^S LYMPHOMA
     Dosage: 8 EPISODES
     Route: 042
     Dates: start: 2012
  6. HYDROCORTISONE. [Concomitant]
     Active Substance: HYDROCORTISONE
     Indication: PREMEDICATION
     Dosage: PREMEDICATION FOR RITUXAN
     Route: 065
  7. VELCADE [Concomitant]
     Active Substance: BORTEZOMIB
     Indication: WALDENSTROM^S MACROGLOBULINAEMIA
     Dosage: PREMEDICATION FOR RITUXAN
     Route: 065
  8. DEXAMETHASONE. [Concomitant]
     Active Substance: DEXAMETHASONE
     Indication: WALDENSTROM^S MACROGLOBULINAEMIA

REACTIONS (10)
  - Back pain [Unknown]
  - Flushing [Not Recovered/Not Resolved]
  - Pruritus [Recovered/Resolved]
  - Infusion related reaction [Not Recovered/Not Resolved]
  - Dyspepsia [Unknown]
  - Cognitive disorder [Not Recovered/Not Resolved]
  - Swelling [Unknown]
  - Dyspnoea [Recovered/Resolved]
  - Rhinorrhoea [Unknown]
  - Swelling face [Not Recovered/Not Resolved]
